FAERS Safety Report 17229912 (Version 1)
Quarter: 2020Q1

REPORT INFORMATION
  Report Type: Spontaneous
  Country: US (occurrence: US)
  Receive Date: 20200103
  Receipt Date: 20200103
  Transmission Date: 20200409
  Serious: Yes (Hospitalization)
  Sender: FDA-Public Use
  Company Number: US-GENERICUS, INC.-2019GNR00048

PATIENT
  Sex: Male

DRUGS (1)
  1. TOBRAMYCIN. [Suspect]
     Active Substance: TOBRAMYCIN
     Indication: CYSTIC FIBROSIS
     Dosage: 300 MG, 2X/DAY (28 DAYS ON AND 28 DAYS OFF)
     Dates: start: 20190618

REACTIONS (1)
  - Infective pulmonary exacerbation of cystic fibrosis [Unknown]

NARRATIVE: CASE EVENT DATE: 2019
